FAERS Safety Report 4273890-3 (Version None)
Quarter: 2004Q1

REPORT INFORMATION
  Report Type: 
  Country: None (occurrence: None)
  Receive Date: 20040115
  Receipt Date: 20031229
  Transmission Date: 20041129
  Serious: Yes (Other)
  Sender: FDA-Public Use
  Company Number: USA030947943

PATIENT
  Age: 57 Year
  Sex: Female

DRUGS (13)
  1. FORTEO [Suspect]
     Indication: OSTEOPOROSIS
     Dosage: 20 UG/DAY
     Dates: start: 20030915
  2. EVISTA [Concomitant]
  3. OXYCONTIN [Concomitant]
  4. LACTULOSE [Concomitant]
  5. DOXEPIN HCL [Concomitant]
  6. DEPAKOTE [Concomitant]
  7. TOPAMAX [Concomitant]
  8. MULTI-VITAMIN [Concomitant]
  9. VITAMIN C [Concomitant]
  10. CALCIUM [Concomitant]
  11. VITAMIN B [Concomitant]
  12. STOOL SOFTENER (DOCUSATE SODIUM) [Concomitant]
  13. PROTEIN POWDER [Concomitant]

REACTIONS (2)
  - INJECTION SITE ERYTHEMA [None]
  - PLATELET COUNT DECREASED [None]
